FAERS Safety Report 8033267-1 (Version None)
Quarter: 2011Q4

REPORT INFORMATION
  Report Type: 
  Country: None (occurrence: None)
  Receive Date: 20111202
  Receipt Date: 20110524
  Transmission Date: 20120403
  Serious: Yes (Hospitalization)
  Sender: FDA-Public Use
  Company Number: WAES 1105USA03578

PATIENT
  Age: 70 Year
  Sex: Male

DRUGS (15)
  1. LOPRESSOR [Concomitant]
  2. SORBITOL 50PC INJ [Concomitant]
  3. CARBAMAZEPINE [Concomitant]
  4. CLONAZEPAM [Concomitant]
  5. FOSAMAX [Suspect]
     Indication: OSTEOPENIA
     Dosage: 70 MG/WKY/UNK 70 MG/WKY/PO
     Route: 048
     Dates: start: 20110201
  6. FOSAMAX [Suspect]
     Indication: OSTEOPOROSIS
     Dosage: 70 MG/WKY/UNK 70 MG/WKY/PO
     Route: 048
     Dates: start: 20110201
  7. FOSAMAX [Suspect]
     Indication: OSTEOPENIA
     Dosage: 70 MG/WKY/UNK 70 MG/WKY/PO
     Route: 048
     Dates: end: 20110201
  8. FOSAMAX [Suspect]
     Indication: OSTEOPOROSIS
     Dosage: 70 MG/WKY/UNK 70 MG/WKY/PO
     Route: 048
     Dates: end: 20110201
  9. FERROUS SULFATE TAB [Concomitant]
  10. CENTRUM LIQUID [Concomitant]
  11. LORATADINE [Concomitant]
  12. LOVASTATIN [Concomitant]
  13. CALCIUM (UNSPECIFIED) (+) VITAMI [Concomitant]
  14. LAMICTAL [Concomitant]
  15. PROTONIX [Concomitant]

REACTIONS (2)
  - EROSIVE OESOPHAGITIS [None]
  - INCORRECT ROUTE OF DRUG ADMINISTRATION [None]
